FAERS Safety Report 6817534-2 (Version None)
Quarter: 2010Q3

REPORT INFORMATION
  Report Type: 
  Country: None (occurrence: None)
  Receive Date: 20100706
  Receipt Date: 20100628
  Transmission Date: 20110219
  Serious: Yes (Other)
  Sender: FDA-Public Use
  Company Number: US-JNJFOC-20100700207

PATIENT
  Sex: Female
  Weight: 68.04 kg

DRUGS (7)
  1. INVEGA [Suspect]
     Indication: BIPOLAR DISORDER
     Route: 048
  2. INVEGA [Suspect]
     Route: 048
  3. CARBAMAZEPINE [Concomitant]
     Indication: DRUG THERAPY
     Route: 048
  4. EFFEXOR [Concomitant]
     Indication: DEPRESSION
     Route: 048
  5. SEROQUEL [Concomitant]
     Indication: INSOMNIA
     Route: 048
  6. ATIVAN [Concomitant]
     Indication: ANXIETY
     Route: 048
  7. LIDODERM [Concomitant]
     Indication: BACK PAIN
     Route: 062

REACTIONS (2)
  - OEDEMA PERIPHERAL [None]
  - WEIGHT INCREASED [None]
